FAERS Safety Report 18649504 (Version 1)
Quarter: 2020Q4

REPORT INFORMATION
  Report Type: Spontaneous
  Country: US (occurrence: US)
  Receive Date: 20201222
  Receipt Date: 20201222
  Transmission Date: 20210114
  Serious: Yes (Hospitalization, Other)
  Sender: FDA-Public Use
  Company Number: US-INSUD PHARMA-2012US00285

PATIENT

DRUGS (3)
  1. HERBAL NOS [Suspect]
     Active Substance: HERBALS
     Indication: MUSCLE BUILDING THERAPY
     Dosage: UNK
     Route: 030
  2. TESTOSTERONE. [Suspect]
     Active Substance: TESTOSTERONE
     Indication: MUSCLE BUILDING THERAPY
     Dosage: UNK
     Route: 030
  3. KEPPRA [Concomitant]
     Active Substance: LEVETIRACETAM
     Indication: SEIZURE

REACTIONS (7)
  - Necrotising fasciitis [Unknown]
  - Purulence [Unknown]
  - Arthralgia [Unknown]
  - Bacterial infection [Unknown]
  - Gait disturbance [Unknown]
  - Drug abuser [Unknown]
  - Injection site erythema [Unknown]
